FAERS Safety Report 20882386 (Version 1)
Quarter: 2022Q2

REPORT INFORMATION
  Report Type: Spontaneous
  Country: FR (occurrence: FR)
  Receive Date: 20220527
  Receipt Date: 20220527
  Transmission Date: 20220721
  Serious: Yes (Other)
  Sender: FDA-Public Use
  Company Number: None

PATIENT
  Age: 77 Year
  Sex: Female
  Weight: 55 kg

DRUGS (7)
  1. FILGRASTIM [Suspect]
     Active Substance: FILGRASTIM
     Indication: Prophylaxis
     Dosage: 48000000 IU, 1X/DAY
     Route: 058
     Dates: start: 20220303, end: 20220307
  2. PACLITAXEL [Suspect]
     Active Substance: PACLITAXEL
     Indication: Uterine cancer
     Dosage: 270 MG, CYCLIC, C1
     Route: 041
     Dates: start: 20220301
  3. FERINJECT [Suspect]
     Active Substance: FERRIC CARBOXYMALTOSE
     Indication: Iron deficiency anaemia
     Dosage: 1 G, SINGLE
     Route: 041
     Dates: start: 20220301, end: 20220301
  4. CARBOPLATIN [Suspect]
     Active Substance: CARBOPLATIN
     Indication: Uterine cancer
     Dosage: 440 MG, CYCLIC, C1
     Route: 041
     Dates: start: 20220301
  5. PRIMPERAN [Suspect]
     Active Substance: METOCLOPRAMIDE HYDROCHLORIDE
     Indication: Prophylaxis of nausea and vomiting
     Dosage: 10 MG X1/ ON DEMAND
     Route: 048
     Dates: start: 20220302, end: 20220306
  6. EMEND [Suspect]
     Active Substance: APREPITANT
     Indication: Prophylaxis of nausea and vomiting
     Dosage: 125 MG, SINGLE
     Route: 048
     Dates: start: 20220301, end: 20220301
  7. EMEND [Suspect]
     Active Substance: APREPITANT
     Dosage: 80 MG, 1X/DAY
     Route: 048
     Dates: start: 20220302, end: 20220303

REACTIONS (2)
  - Cholestatic liver injury [Recovered/Resolved]
  - Off label use [Recovered/Resolved]

NARRATIVE: CASE EVENT DATE: 20220303
